FAERS Safety Report 6730715-1 (Version None)
Quarter: 2010Q2

REPORT INFORMATION
  Report Type: 
  Country: None (occurrence: None)
  Receive Date: 20100514
  Receipt Date: 20100505
  Transmission Date: 20101027
  Serious: No
  Sender: FDA-Public Use
  Company Number: TPA2010A02638

PATIENT
  Sex: Male

DRUGS (1)
  1. ACTOPLUS MET [Suspect]
     Indication: DIABETES MELLITUS
     Dosage: 15 MG/850 MG, TWICE DAILY, PER ORAL
     Route: 048

REACTIONS (1)
  - HYPOGLYCAEMIA [None]
